FAERS Safety Report 10218341 (Version 1)
Quarter: 2014Q2

REPORT INFORMATION
  Report Type: Spontaneous
  Country: GB (occurrence: GB)
  Receive Date: 20140605
  Receipt Date: 20140605
  Transmission Date: 20141212
  Serious: Yes (Disabling, Other)
  Sender: FDA-Public Use
  Company Number: GB-ACCORD-024040

PATIENT
  Age: 88 Year
  Sex: Male

DRUGS (4)
  1. RAMIPRIL [Concomitant]
     Indication: HYPERTENSION
     Dosage: STARTED 2 YEARS AGO.
     Route: 048
  2. TAMSULOSIN/TAMSULOSIN HYDROCHLORIDE [Concomitant]
     Indication: HYPERTENSION
     Dosage: STARTED 2 YEARS AGO.
     Route: 048
  3. DONEPEZIL/DONEPEZIL HYDROCHLORIDE [Suspect]
     Indication: MEMORY IMPAIRMENT
     Route: 048
     Dates: start: 20140318, end: 20140402
  4. FUROSEMIDE [Concomitant]
     Indication: HYPERTENSION
     Dosage: STARTED 2 YEARS AGO.
     Route: 048

REACTIONS (2)
  - Rash pruritic [Recovering/Resolving]
  - Rash erythematous [Recovering/Resolving]
